FAERS Safety Report 8120917-4 (Version None)
Quarter: 2012Q1

REPORT INFORMATION
  Report Type: 
  Country: None (occurrence: None)
  Receive Date: 20120208
  Receipt Date: 20120126
  Transmission Date: 20120608
  Serious: Yes (Hospitalization)
  Sender: FDA-Public Use
  Company Number: JP-ELI_LILLY_AND_COMPANY-JP201201008212

PATIENT
  Age: 71 Year
  Sex: Female

DRUGS (4)
  1. FORTEO [Suspect]
     Indication: OSTEOPOROSIS
     Dosage: UNK
     Route: 058
     Dates: start: 20120116, end: 20120122
  2. CANDESARTAN CILEXETIL [Concomitant]
     Dosage: UNK
     Route: 048
  3. LOXOPROFEN SODIUM [Concomitant]
     Dosage: 1 DF, TID
     Route: 048
     Dates: start: 20111201
  4. REBAMIPIDE [Concomitant]
     Dosage: 1 DF, TID
     Route: 048
     Dates: start: 20111201

REACTIONS (1)
  - HERPES ZOSTER [None]
